FAERS Safety Report 5405794-4 (Version None)
Quarter: 2007Q3

REPORT INFORMATION
  Report Type: 
  Country: None (occurrence: None)
  Receive Date: 20070806
  Receipt Date: 20070723
  Transmission Date: 20080115
  Serious: Yes (Death, Life-Threatening)
  Sender: FDA-Public Use
  Company Number: DK-ELI_LILLY_AND_COMPANY-DK200706005414

PATIENT
  Age: 46 Year
  Sex: Female
  Weight: 72 kg

DRUGS (14)
  1. OLANZAPINE [Suspect]
     Indication: ANXIETY
     Dosage: 30 MG DAILY
     Route: 048
     Dates: start: 20070608, end: 20070609
  2. ACETAMINOPHEN [Concomitant]
     Indication: CARDIAC NEOPLASM MALIGNANT
     Dosage: 40 MG, DAILY (1/D)
     Route: 058
     Dates: start: 20070606
  3. PANTOPRAZOLE SODIUM [Concomitant]
     Dosage: 40 MG, UNKNOWN
     Route: 042
  4. HALCION [Concomitant]
     Dosage: 0.25 MG, UNKNOWN
     Route: 060
     Dates: start: 20070607
  5. ESKETAMINE [Concomitant]
     Dosage: UNK, UNKNOWN
     Route: 058
     Dates: start: 20070607
  6. OXYCODONE HCL [Concomitant]
     Dosage: UNK, UNKNOWN
     Route: 042
     Dates: start: 20070607
  7. KETOGAN [Concomitant]
     Dosage: UNK, UNKNOWN
     Route: 058
  8. MOVICOL [Concomitant]
     Dosage: UNK, UNKNOWN
     Route: 048
     Dates: start: 20070601
  9. SERENASE [Concomitant]
     Dosage: 1 MG, DAILY (1/D)
     Route: 042
     Dates: start: 20070607, end: 20070608
  10. ZOFRAN [Concomitant]
     Dosage: 4 MG, DAILY (1/D)
     Route: 042
     Dates: start: 20070608
  11. FURIX [Concomitant]
     Dosage: 2 X 20 MG/DAILY
     Route: 042
     Dates: start: 20070608
  12. CEFUROXIME [Concomitant]
     Dosage: 1500 MG, UNKNOWN
     Route: 042
     Dates: start: 20070608
  13. TAXOTERE [Concomitant]
     Indication: NEOPLASM MALIGNANT
     Dosage: UNK, UNKNOWN
     Route: 065
  14. KLEXANE [Concomitant]
     Route: 058

REACTIONS (5)
  - ANXIETY [None]
  - DEATH [None]
  - OVERDOSE [None]
  - PULMONARY EMBOLISM [None]
  - VENA CAVA THROMBOSIS [None]
